FAERS Safety Report 5041470-8 (Version None)
Quarter: 2006Q2

REPORT INFORMATION
  Report Type: 
  Country: None (occurrence: None)
  Receive Date: 20060627
  Receipt Date: 20060616
  Transmission Date: 20061013
  Serious: Yes (Hospitalization)
  Sender: FDA-Public Use
  Company Number: 2006BI008750

PATIENT
  Sex: Female

DRUGS (1)
  1. AVONEX [Suspect]
     Indication: MULTIPLE SCLEROSIS
     Dosage: IM
     Route: 030
     Dates: end: 20060401

REACTIONS (5)
  - DEHYDRATION [None]
  - EATING DISORDER [None]
  - HALLUCINATION [None]
  - PYREXIA [None]
  - WEIGHT FLUCTUATION [None]
